FAERS Safety Report 13849503 (Version 1)
Quarter: 2017Q3

REPORT INFORMATION
  Report Type: Spontaneous
  Country: US (occurrence: US)
  Receive Date: 20170809
  Receipt Date: 20170809
  Transmission Date: 20171127
  Serious: No
  Sender: FDA-Public Use
  Company Number: US-PFIZER INC-2017342478

PATIENT
  Sex: Female

DRUGS (1)
  1. VENLAFAXINE HCL [Suspect]
     Active Substance: VENLAFAXINE HYDROCHLORIDE
     Dosage: UNK

REACTIONS (7)
  - Withdrawal syndrome [Unknown]
  - Headache [Unknown]
  - Crying [Unknown]
  - Dyspnoea [Unknown]
  - Mood swings [Unknown]
  - Depression [Unknown]
  - Cardiac disorder [Unknown]
